FAERS Safety Report 20736076 (Version 1)
Quarter: 2022Q2

REPORT INFORMATION
  Report Type: Report from Study
  Country: NL (occurrence: None)
  Receive Date: 20220421
  Receipt Date: 20220421
  Transmission Date: 20220720
  Serious: Yes (Hospitalization)
  Sender: FDA-Public Use
  Company Number: NL-ROCHE-3021499

PATIENT
  Age: 65 Year
  Sex: Female

DRUGS (4)
  1. BEVACIZUMAB [Suspect]
     Active Substance: BEVACIZUMAB
     Indication: Colorectal cancer metastatic
     Route: 042
     Dates: start: 20210928
  2. CAPECITABINE [Suspect]
     Active Substance: CAPECITABINE
     Indication: Colorectal cancer metastatic
     Dosage: CONSECUTIVE DATE OF TREATMENT: 06/DEC/2021
     Route: 048
     Dates: start: 20210928
  3. OXALIPLATIN [Suspect]
     Active Substance: OXALIPLATIN
     Indication: Colorectal cancer metastatic
     Dosage: CONSECUTIVE DATE OF TREATMENT: 06/DEC/2021
     Route: 042
     Dates: start: 20210928
  4. CAPOX B [Concomitant]
     Route: 065

REACTIONS (2)
  - Impaired gastric emptying [Recovered/Resolved]
  - Anastomotic leak [Recovering/Resolving]

NARRATIVE: CASE EVENT DATE: 20220203
